FAERS Safety Report 14138384 (Version 1)
Quarter: 2017Q4

REPORT INFORMATION
  Report Type: Spontaneous
  Country: US (occurrence: US)
  Receive Date: 20171027
  Receipt Date: 20171027
  Transmission Date: 20180321
  Serious: No
  Sender: FDA-Public Use
  Company Number: US-ROCHE-1892606

PATIENT
  Age: 9 Year
  Sex: Female

DRUGS (1)
  1. TAMIFLU [Suspect]
     Active Substance: OSELTAMIVIR PHOSPHATE
     Indication: INFLUENZA
     Route: 048
     Dates: start: 20170209, end: 20170209

REACTIONS (4)
  - Nightmare [Recovered/Resolved]
  - Hypersomnia [Not Recovered/Not Resolved]
  - Abdominal pain [Recovered/Resolved]
  - Staring [Recovered/Resolved]

NARRATIVE: CASE EVENT DATE: 20170209
